FAERS Safety Report 18234214 (Version 1)
Quarter: 2020Q3

REPORT INFORMATION
  Report Type: Report from Study
  Country: IT (occurrence: IT)
  Receive Date: 20200904
  Receipt Date: 20200904
  Transmission Date: 20201103
  Serious: Yes (Other)
  Sender: FDA-Public Use
  Company Number: IT-MYLANLABS-2020M1076471

PATIENT
  Age: 37 Year
  Sex: Female

DRUGS (1)
  1. COPEMYLTRI [Suspect]
     Active Substance: GLATIRAMER ACETATE
     Indication: MULTIPLE SCLEROSIS
     Dosage: UNK
     Route: 058

REACTIONS (1)
  - Multiple sclerosis [Unknown]
